FAERS Safety Report 17933039 (Version 1)
Quarter: 2020Q2

REPORT INFORMATION
  Report Type: Spontaneous
  Country: CN (occurrence: CN)
  Receive Date: 20200624
  Receipt Date: 20200624
  Transmission Date: 20200714
  Serious: Yes (Other)
  Sender: FDA-Public Use
  Company Number: CN-ROCHE-2629238

PATIENT
  Age: 48 Year
  Sex: Female

DRUGS (16)
  1. MABTHERA [Suspect]
     Active Substance: RITUXIMAB
     Dosage: FOR DAY0
     Route: 041
     Dates: start: 20200228
  2. CYCLOPHOSPHAMIDE. [Concomitant]
     Active Substance: CYCLOPHOSPHAMIDE
     Indication: DIFFUSE LARGE B-CELL LYMPHOMA
     Route: 065
     Dates: start: 20190101
  3. PIRARUBICIN [Concomitant]
     Active Substance: PIRARUBICIN
     Indication: DIFFUSE LARGE B-CELL LYMPHOMA
  4. VINDESINE [Concomitant]
     Active Substance: VINDESINE
     Dosage: FOR DAY1
     Route: 065
     Dates: start: 20200228
  5. CYCLOPHOSPHAMIDE. [Concomitant]
     Active Substance: CYCLOPHOSPHAMIDE
     Dosage: FROM DAY2 TO DAY4
     Route: 065
  6. CYCLOPHOSPHAMIDE. [Concomitant]
     Active Substance: CYCLOPHOSPHAMIDE
     Dosage: FOR DAY1
     Route: 065
     Dates: start: 20200228
  7. VINDESINE [Concomitant]
     Active Substance: VINDESINE
     Indication: DIFFUSE LARGE B-CELL LYMPHOMA
     Route: 065
     Dates: start: 20190101
  8. CYCLOPHOSPHAMIDE. [Concomitant]
     Active Substance: CYCLOPHOSPHAMIDE
     Dosage: FOR DAY1
     Route: 065
     Dates: start: 20200410
  9. VINDESINE [Concomitant]
     Active Substance: VINDESINE
     Dosage: FOR DAY1
     Route: 065
     Dates: start: 20200410
  10. PREDNISONE. [Concomitant]
     Active Substance: PREDNISONE
     Indication: DIFFUSE LARGE B-CELL LYMPHOMA
     Route: 065
     Dates: start: 20190101
  11. MABTHERA [Suspect]
     Active Substance: RITUXIMAB
     Indication: DIFFUSE LARGE B-CELL LYMPHOMA
     Route: 041
     Dates: start: 20190101
  12. MABTHERA [Suspect]
     Active Substance: RITUXIMAB
     Dosage: FOR DAY1
     Route: 041
  13. MABTHERA [Suspect]
     Active Substance: RITUXIMAB
     Dosage: FOR DAY0
     Route: 041
     Dates: start: 20200410
  14. EPIRUBICIN [Concomitant]
     Active Substance: EPIRUBICIN
     Indication: DIFFUSE LARGE B-CELL LYMPHOMA
     Dosage: FOR DAY1
     Route: 065
     Dates: start: 20200228
  15. EPIRUBICIN [Concomitant]
     Active Substance: EPIRUBICIN
     Dosage: FOR DAY1
     Route: 065
     Dates: start: 20200410
  16. MABTHERA [Suspect]
     Active Substance: RITUXIMAB
     Dosage: FOR DAY1
     Route: 041

REACTIONS (1)
  - Bone marrow failure [Recovering/Resolving]
